FAERS Safety Report 18917953 (Version 1)
Quarter: 2021Q1

REPORT INFORMATION
  Report Type: Spontaneous
  Country: DE (occurrence: DE)
  Receive Date: 20210219
  Receipt Date: 20210219
  Transmission Date: 20210420
  Serious: Yes (Other)
  Sender: FDA-Public Use
  Company Number: PHHY2018DE021324

PATIENT
  Sex: Male

DRUGS (1)
  1. MIFLONIDE BREEZHALER [Suspect]
     Active Substance: BUDESONIDE
     Indication: PRODUCT USED FOR UNKNOWN INDICATION
     Dosage: 800 MG, QD
     Route: 055
     Dates: start: 201710, end: 201801

REACTIONS (2)
  - Product physical issue [Unknown]
  - Foreign body in mouth [Recovered/Resolved]

NARRATIVE: CASE EVENT DATE: 201710
